FAERS Safety Report 7978138-1 (Version None)
Quarter: 2011Q4

REPORT INFORMATION
  Report Type: 
  Country: None (occurrence: None)
  Receive Date: 20111202
  Receipt Date: 20111122
  Transmission Date: 20120403
  Serious: Yes (Other)
  Sender: FDA-Public Use
  Company Number: 2011285534

PATIENT
  Age: 56 Year
  Sex: Male

DRUGS (1)
  1. FRAGMIN [Suspect]
     Indication: HIP SURGERY

REACTIONS (1)
  - THROMBOCYTOSIS [None]
